FAERS Safety Report 10800920 (Version 1)
Quarter: 2015Q1

REPORT INFORMATION
  Report Type: Spontaneous
  Country: US (occurrence: US)
  Receive Date: 20150216
  Receipt Date: 20150216
  Transmission Date: 20150721
  Serious: No
  Sender: FDA-Public Use
  Company Number: US-ELI_LILLY_AND_COMPANY-US201502000357

PATIENT
  Sex: Female

DRUGS (4)
  1. VICTOZA [Concomitant]
     Active Substance: LIRAGLUTIDE
  2. HUMALOG [Suspect]
     Active Substance: INSULIN LISPRO
     Indication: TYPE 2 DIABETES MELLITUS
     Dosage: 32 U, TID
     Route: 065
     Dates: start: 2014
  3. LEVEMIR [Concomitant]
     Active Substance: INSULIN DETEMIR
     Dosage: 42 U, BID
  4. METFORMIN [Concomitant]
     Active Substance: METFORMIN HYDROCHLORIDE
     Dosage: UNK, BID

REACTIONS (1)
  - Visual impairment [Unknown]
